FAERS Safety Report 12203361 (Version 1)
Quarter: 2016Q1

REPORT INFORMATION
  Report Type: Spontaneous
  Country: US (occurrence: None)
  Receive Date: 20160321
  Receipt Date: 20160321
  Transmission Date: 20160526
  Serious: Yes (Other)
  Sender: FDA-Public Use
  Company Number: None

PATIENT
  Age: 73 Year
  Sex: Female

DRUGS (1)
  1. LISINOPRIL 40 MG LUPIN PHARMACE [Suspect]
     Active Substance: LISINOPRIL
     Dosage: 40 MG QD X 2

REACTIONS (2)
  - Acute myocardial infarction [None]
  - Hyperkalaemia [None]

NARRATIVE: CASE EVENT DATE: 20150202
